FAERS Safety Report 16067253 (Version 2)
Quarter: 2019Q2

REPORT INFORMATION
  Report Type: Spontaneous
  Country: JP (occurrence: JP)
  Receive Date: 20190313
  Receipt Date: 20190510
  Transmission Date: 20190711
  Serious: Yes (Hospitalization, Other)
  Sender: FDA-Public Use
  Company Number: JP-PFIZER INC-2018527260

PATIENT
  Age: 50 Year
  Sex: Male
  Weight: 54.2 kg

DRUGS (5)
  1. TORISEL [Suspect]
     Active Substance: TEMSIROLIMUS
     Indication: LUNG CANCER METASTATIC
     Dosage: 25 MG, 1X/DAY
     Route: 042
     Dates: start: 20181128, end: 20181128
  2. TORISEL [Suspect]
     Active Substance: TEMSIROLIMUS
     Dosage: 25 MG, DAILY
     Route: 042
     Dates: start: 20181214, end: 20181214
  3. TORISEL [Suspect]
     Active Substance: TEMSIROLIMUS
     Dosage: 25 MG, DAILY
     Route: 042
     Dates: start: 20181227, end: 20181227
  4. TORISEL [Suspect]
     Active Substance: TEMSIROLIMUS
     Dosage: 25 MG, DAILY
     Route: 042
     Dates: start: 20181220, end: 20181220
  5. OPDIVO [Suspect]
     Active Substance: NIVOLUMAB
     Indication: LUNG CANCER METASTATIC
     Dosage: 200 MG, 1X/DAY
     Route: 042
     Dates: start: 20180515, end: 20180823

REACTIONS (6)
  - Pyrexia [Recovered/Resolved]
  - Hyperglycaemia [Recovered/Resolved]
  - Anaemia [Recovered/Resolved]
  - C-reactive protein increased [Recovered/Resolved]
  - Product use in unapproved indication [Unknown]
  - Pneumonia bacterial [Recovered/Resolved]

NARRATIVE: CASE EVENT DATE: 20181212
